FAERS Safety Report 23921780 (Version 2)
Quarter: 2024Q2

REPORT INFORMATION
  Report Type: Report from Study
  Country: US (occurrence: US)
  Receive Date: 20240530
  Receipt Date: 20240608
  Transmission Date: 20240716
  Serious: Yes (Hospitalization)
  Sender: FDA-Public Use
  Company Number: US-ABBVIE-5775866

PATIENT
  Age: 83 Year
  Sex: Male

DRUGS (1)
  1. VENCLEXTA [Suspect]
     Active Substance: VENETOCLAX
     Indication: Acute myeloid leukaemia
     Dosage: USE AS DIRECTED WAS APPROVED THROUGH 31-DEC-2024 UNDER YOUR MEDICARE PART?TAKE 4 TABLET DAILY?100 MG
     Route: 048
     Dates: start: 20240507

REACTIONS (2)
  - Hospitalisation [Unknown]
  - Platelet count decreased [Not Recovered/Not Resolved]

NARRATIVE: CASE EVENT DATE: 20240501
